FAERS Safety Report 4992172-5 (Version None)
Quarter: 2006Q2

REPORT INFORMATION
  Report Type: 
  Country: None (occurrence: None)
  Receive Date: 20060502
  Receipt Date: 20060320
  Transmission Date: 20061013
  Serious: Yes (Other)
  Sender: FDA-Public Use
  Company Number: 2006BH006384

PATIENT
  Sex: 0

DRUGS (1)
  1. MIDAZOLAM HYDROCHLORIDE [Suspect]
     Indication: CONVULSION NEONATAL
     Dosage: 4.0 UG/KG; MIN

REACTIONS (2)
  - HYPOTENSION [None]
  - URINARY RETENTION [None]
